FAERS Safety Report 17420975 (Version 1)
Quarter: 2020Q1

REPORT INFORMATION
  Report Type: Spontaneous
  Country: US (occurrence: US)
  Receive Date: 20200214
  Receipt Date: 20200214
  Transmission Date: 20200409
  Serious: Yes (Hospitalization)
  Sender: FDA-Public Use
  Company Number: US-ELI_LILLY_AND_COMPANY-US202002002544

PATIENT
  Age: 71 Year
  Sex: Female

DRUGS (1)
  1. EMGALITY [Suspect]
     Active Substance: GALCANEZUMAB-GNLM
     Indication: CLUSTER HEADACHE
     Dosage: 100 MG, UNKNOWN
     Route: 058
     Dates: start: 20200201

REACTIONS (4)
  - Headache [Unknown]
  - Cluster headache [Unknown]
  - Pain [Unknown]
  - Drug ineffective [Unknown]
